FAERS Safety Report 3324953 (Version 1)
Quarter: 2020Q3

REPORT INFORMATION
  Report Type: Spontaneous
  Country: US (occurrence: None)
  Receive Date: 19990810
  Receipt Date: 19990810
  Transmission Date: 20201104
  Serious: Yes (Other)
  Sender: FDA-Public Use
  Company Number: None

PATIENT
  Age: 52 Year
  Sex: Female
  Weight: 49.03 kg

DRUGS (5)
  1. BICITRA [Concomitant]
     Active Substance: CITRIC ACID, 1-STEARYL ESTER\SODIUM CITRATE
  2. ALATROFLOXACIN MESYLATE. [Suspect]
     Active Substance: ALATROFLOXACIN MESYLATE
     Indication: BACTERIAL INFECTION
     Dosage: 300MG IV RATE UNKNOWN
     Route: 041
     Dates: start: 19990422
  3. MIDAZOLAM HYDROCHLORIDE. [Concomitant]
     Active Substance: MIDAZOLAM HYDROCHLORIDE
  4. ALATROFLOXACIN MESYLATE. [Suspect]
     Active Substance: ALATROFLOXACIN MESYLATE
     Indication: PROPHYLAXIS
     Dosage: 300MG IV RATE UNKNOWN
     Route: 041
     Dates: start: 19990422
  5. METOCLOPRAMIDE. [Concomitant]
     Active Substance: METOCLOPRAMIDE

REACTIONS (2)
  - Burning sensation [None]
  - Pain [None]

NARRATIVE: CASE EVENT DATE: 19990422
